FAERS Safety Report 16010833 (Version 1)
Quarter: 2019Q1

REPORT INFORMATION
  Report Type: Spontaneous
  Country: CA (occurrence: CA)
  Receive Date: 20190227
  Receipt Date: 20190227
  Transmission Date: 20190418
  Serious: Yes (Other)
  Sender: FDA-Public Use
  Company Number: CA-TEVA-2019-CA-1018759

PATIENT
  Age: 71 Year
  Sex: Female
  Weight: 99 kg

DRUGS (9)
  1. METHOTREXATE. [Suspect]
     Active Substance: METHOTREXATE
     Indication: PRODUCT USED FOR UNKNOWN INDICATION
     Route: 065
  2. INFLIXIMAB [Suspect]
     Active Substance: INFLIXIMAB
     Indication: RHEUMATOID ARTHRITIS
     Route: 042
  3. L-THYROXINE [Concomitant]
     Active Substance: LEVOTHYROXINE
  4. COVERSYL [Concomitant]
     Active Substance: PERINDOPRIL
  5. ESOMEPRAZOLE MAGNESIUM TRIHYDRATE [Concomitant]
     Active Substance: ESOMEPRAZOLE MAGNESIUM
  6. FOLIC ACID. [Concomitant]
     Active Substance: FOLIC ACID
  7. PREDNISONE. [Concomitant]
     Active Substance: PREDNISONE
  8. ALENDRONATE SODIUM. [Concomitant]
     Active Substance: ALENDRONATE SODIUM
  9. SALBUTAMOL HFA [Concomitant]
     Active Substance: ALBUTEROL

REACTIONS (8)
  - Back pain [Recovered/Resolved]
  - Cystitis [Recovered/Resolved]
  - Abdominal pain [Recovered/Resolved]
  - Urinary tract infection [Recovered/Resolved]
  - Blood pressure fluctuation [Recovered/Resolved]
  - Constipation [Recovered/Resolved]
  - Cataract [Recovered/Resolved]
  - Condition aggravated [Recovered/Resolved]
